FAERS Safety Report 10074701 (Version 1)
Quarter: 2014Q2

REPORT INFORMATION
  Report Type: Spontaneous
  Country: FR (occurrence: FR)
  Receive Date: 20140414
  Receipt Date: 20140414
  Transmission Date: 20141212
  Serious: Yes (Other)
  Sender: FDA-Public Use
  Company Number: FR-ROCHE-1381901

PATIENT
  Sex: Male

DRUGS (2)
  1. MABTHERA [Suspect]
     Indication: RHEUMATOID ARTHRITIS
     Dosage: 1ST CYCLE D1
     Route: 042
     Dates: start: 20140103
  2. MABTHERA [Suspect]
     Dosage: 1ST CYCLE D15
     Route: 042
     Dates: start: 20140120

REACTIONS (1)
  - Febrile neutropenia [Unknown]
